FAERS Safety Report 15767727 (Version 3)
Quarter: 2019Q4

REPORT INFORMATION
  Report Type: Report from Study
  Country: FR (occurrence: FR)
  Receive Date: 20181227
  Receipt Date: 20191004
  Transmission Date: 20200122
  Serious: No
  Sender: FDA-Public Use
  Company Number: FR-SEATTLE GENETICS-2018SGN02877

PATIENT
  Age: 77 Year
  Sex: Female
  Weight: 48 kg

DRUGS (6)
  1. BRENTUXIMAB VEDOTIN-MPI [Suspect]
     Active Substance: BRENTUXIMAB VEDOTIN
     Dosage: 95 MG, UNK
     Route: 065
     Dates: start: 20190107, end: 20190513
  2. BRENTUXIMAB VEDOTIN-MPI [Suspect]
     Active Substance: BRENTUXIMAB VEDOTIN
     Dosage: 90 MG, UNK
     Route: 065
     Dates: start: 20181106
  3. BRENTUXIMAB VEDOTIN-MPI [Suspect]
     Active Substance: BRENTUXIMAB VEDOTIN
     Dosage: 85 MG, UNK
     Route: 065
     Dates: start: 20181015
  4. BRENTUXIMAB VEDOTIN-MPI [Suspect]
     Active Substance: BRENTUXIMAB VEDOTIN
     Dosage: 93 MG, UNK
     Route: 065
     Dates: start: 20181126
  5. BRENTUXIMAB VEDOTIN-MPI [Suspect]
     Active Substance: BRENTUXIMAB VEDOTIN
     Dosage: 93 UNK, UNK
     Route: 065
     Dates: start: 20181217, end: 20190513
  6. BRENTUXIMAB VEDOTIN-MPI [Suspect]
     Active Substance: BRENTUXIMAB VEDOTIN
     Indication: HODGKIN^S DISEASE
     Dosage: 86 MG, UNK
     Route: 065
     Dates: start: 20180924

REACTIONS (2)
  - Weight increased [Recovered/Resolved]
  - Off label use [Unknown]
